FAERS Safety Report 19354641 (Version 1)
Quarter: 2021Q2

REPORT INFORMATION
  Report Type: Report from Study
  Country: US (occurrence: US)
  Receive Date: 20210531
  Receipt Date: 20210531
  Transmission Date: 20210717
  Serious: Yes (Other)
  Sender: FDA-Public Use
  Company Number: NVSC2021US114851

PATIENT
  Sex: Female

DRUGS (2)
  1. TOPROL XL [Suspect]
     Active Substance: METOPROLOL SUCCINATE
     Indication: PRODUCT USED FOR UNKNOWN INDICATION
     Dosage: UNK, BID
     Route: 065
     Dates: start: 20210419
  2. ENTRESTO [Suspect]
     Active Substance: SACUBITRIL\VALSARTAN
     Indication: CARDIAC FAILURE
     Dosage: 50 MG, BID
     Route: 048
     Dates: start: 20210419

REACTIONS (18)
  - Eye pruritus [Unknown]
  - Fatigue [Unknown]
  - Hypersensitivity [Unknown]
  - Scratch [Unknown]
  - Formication [Unknown]
  - Weight decreased [Unknown]
  - Nasopharyngitis [Unknown]
  - Rhinorrhoea [Unknown]
  - Discomfort [Unknown]
  - Haemorrhage [Unknown]
  - Memory impairment [Unknown]
  - Pruritus [Unknown]
  - Depression [Unknown]
  - Gait disturbance [Unknown]
  - Facial pain [Unknown]
  - Pain [Unknown]
  - Aphonia [Unknown]
  - Insomnia [Unknown]
